FAERS Safety Report 8548047-8 (Version None)
Quarter: 2012Q3

REPORT INFORMATION
  Report Type: 
  Country: None (occurrence: None)
  Receive Date: 20120730
  Receipt Date: 20120724
  Transmission Date: 20120928
  Serious: Yes (Other)
  Sender: FDA-Public Use
  Company Number: FR-ROCHE-1051384

PATIENT
  Sex: Male

DRUGS (3)
  1. EVEROLIMUS [Suspect]
     Indication: TRANSPLANT REJECTION
     Route: 002
     Dates: start: 20111007, end: 20120312
  2. PREDNISONE TAB [Suspect]
     Indication: TRANSPLANT REJECTION
     Route: 002
     Dates: start: 20110826, end: 20120316
  3. CELLCEPT [Suspect]
     Indication: TRANSPLANT REJECTION
     Route: 002
     Dates: start: 20110826

REACTIONS (1)
  - HYPERTRIGLYCERIDAEMIA [None]
